FAERS Safety Report 11503451 (Version 1)
Quarter: 2015Q3

REPORT INFORMATION
  Report Type: Spontaneous
  Country: US (occurrence: US)
  Receive Date: 20150914
  Receipt Date: 20150914
  Transmission Date: 20151125
  Serious: No
  Sender: FDA-Public Use
  Company Number: US-ASTELLAS-2015US025212

PATIENT
  Sex: Male

DRUGS (1)
  1. XTANDI [Suspect]
     Active Substance: ENZALUTAMIDE
     Indication: PROSTATE CANCER
     Route: 048
     Dates: start: 20150617

REACTIONS (5)
  - Drug dose omission [Unknown]
  - Diarrhoea [Unknown]
  - Dizziness [Unknown]
  - Pollakiuria [Unknown]
  - Peripheral swelling [Unknown]
